FAERS Safety Report 6327898-4 (Version None)
Quarter: 2009Q3

REPORT INFORMATION
  Report Type: 
  Country: None (occurrence: None)
  Receive Date: 20090825
  Receipt Date: 20090522
  Transmission Date: 20100115
  Serious: No
  Sender: FDA-Public Use
  Company Number: US-ABBOTT-01P-163-0187062-00

PATIENT
  Sex: Female
  Weight: 65.376 kg

DRUGS (8)
  1. SYNTHROID [Suspect]
     Indication: HYPOTHYROIDISM
     Route: 048
     Dates: start: 19750101, end: 19830101
  2. SYNTHROID [Suspect]
     Route: 048
     Dates: start: 20040401
  3. SYNTHROID [Suspect]
     Route: 048
     Dates: start: 20040401
  4. SYNTHROID [Suspect]
     Dates: end: 20090501
  5. SYNTHROID [Suspect]
     Dates: start: 20090501
  6. LEVOXYL [Suspect]
     Indication: BASEDOW'S DISEASE
  7. THYROID TAB [Suspect]
     Indication: BASEDOW'S DISEASE
  8. IRON TRINSICON [Concomitant]
     Indication: BLOOD IRON
     Route: 048
     Dates: start: 20040101

REACTIONS (12)
  - ACTIVITIES OF DAILY LIVING IMPAIRED [None]
  - CHEST PAIN [None]
  - DRY SKIN [None]
  - DYSKINESIA [None]
  - DYSPNOEA [None]
  - MUSCULAR WEAKNESS [None]
  - NERVOUSNESS [None]
  - OEDEMA PERIPHERAL [None]
  - POLLAKIURIA [None]
  - RASH ERYTHEMATOUS [None]
  - RESPIRATORY DISORDER [None]
  - SOMNOLENCE [None]
